FAERS Safety Report 4962156-1 (Version None)
Quarter: 2006Q1

REPORT INFORMATION
  Report Type: 
  Country: None (occurrence: None)
  Receive Date: 20060329
  Receipt Date: 20060316
  Transmission Date: 20060701
  Serious: Yes (Death, Hospitalization)
  Sender: FDA-Public Use
  Company Number: GXKR2006US01593

PATIENT
  Age: 28 Year
  Sex: Male

DRUGS (1)
  1. PREDNISONE [Suspect]
     Indication: MUSCULOSKELETAL PAIN
     Dosage: 30 MG, Q12H, ORAL
     Route: 048

REACTIONS (11)
  - ALPHA HAEMOLYTIC STREPTOCOCCAL INFECTION [None]
  - AORTIC VALVE DISEASE [None]
  - CARDIAC ARREST [None]
  - CARDIAC VALVE VEGETATION [None]
  - CONDITION AGGRAVATED [None]
  - COUGH [None]
  - CYANOSIS [None]
  - ENDOCARDITIS BACTERIAL [None]
  - GENERAL PHYSICAL HEALTH DETERIORATION [None]
  - HAEMOPTYSIS [None]
  - PLEURITIC PAIN [None]
